FAERS Safety Report 8158692-X (Version None)
Quarter: 2012Q1

REPORT INFORMATION
  Report Type: 
  Country: None (occurrence: None)
  Receive Date: 20120223
  Receipt Date: 20120215
  Transmission Date: 20120608
  Serious: Yes (Life-Threatening, Hospitalization)
  Sender: FDA-Public Use
  Company Number: US-BAYER-2011-001511

PATIENT
  Age: 32 Year
  Sex: Female
  Weight: 52.154 kg

DRUGS (4)
  1. YASMIN [Suspect]
     Indication: ENDOMETRIOSIS
     Dosage: UNK
     Route: 048
     Dates: start: 20030101, end: 20050301
  2. VICODIN [Concomitant]
     Route: 048
  3. IMITREX [Concomitant]
     Route: 048
  4. ULTRAM [Concomitant]
     Route: 048

REACTIONS (5)
  - GENERAL PHYSICAL HEALTH DETERIORATION [None]
  - EMOTIONAL DISTRESS [None]
  - PAIN [None]
  - SUPERIOR SAGITTAL SINUS THROMBOSIS [None]
  - ANXIETY [None]
